FAERS Safety Report 5198691-3 (Version None)
Quarter: 2007Q1

REPORT INFORMATION
  Report Type: 
  Country: None (occurrence: None)
  Receive Date: 20070104
  Receipt Date: 20061226
  Transmission Date: 20070707
  Serious: Yes (Other)
  Sender: FDA-Public Use
  Company Number: 2007UW00139

PATIENT
  Age: 77 Year
  Sex: Female
  Weight: 90.7 kg

DRUGS (4)
  1. PULMICORT [Suspect]
     Indication: ASTHMA
     Route: 055
     Dates: start: 20030310
  2. LISINOPRIL [Concomitant]
  3. DUONEB [Concomitant]
  4. PROTONIX [Concomitant]

REACTIONS (3)
  - ANGIOPATHY [None]
  - ARTHRALGIA [None]
  - ARTHROPATHY [None]
